FAERS Safety Report 8516266-2 (Version None)
Quarter: 2012Q3

REPORT INFORMATION
  Report Type: 
  Country: None (occurrence: None)
  Receive Date: 20120717
  Receipt Date: 20120703
  Transmission Date: 20120928
  Serious: Yes (Other)
  Sender: FDA-Public Use
  Company Number: CHPA2012US014986

PATIENT
  Age: 58 Year
  Sex: Male

DRUGS (1)
  1. EXCEDRIN (MIGRAINE) [Suspect]
     Indication: HEADACHE
     Dosage: 1 DF, UNK
     Route: 048

REACTIONS (5)
  - UNDERDOSE [None]
  - MYOCARDIAL INFARCTION [None]
  - OFF LABEL USE [None]
  - PAIN [None]
  - THERAPEUTIC RESPONSE UNEXPECTED [None]
